FAERS Safety Report 14054087 (Version 1)
Quarter: 2017Q4

REPORT INFORMATION
  Report Type: Spontaneous
  Country: US (occurrence: US)
  Receive Date: 20171006
  Receipt Date: 20171006
  Transmission Date: 20180321
  Serious: No
  Sender: FDA-Public Use
  Company Number: US-JNJFOC-20170805624

PATIENT
  Age: 80 Year
  Sex: Female
  Weight: 68.95 kg

DRUGS (3)
  1. WOMENS ROGAINE UNSCENTED [Suspect]
     Active Substance: MINOXIDIL
     Indication: ALOPECIA
     Dosage: DID NOT MEASURE IT, ONCE
     Route: 061
     Dates: start: 20170803, end: 20170803
  2. WOMENS ROGAINE UNSCENTED [Suspect]
     Active Substance: MINOXIDIL
     Route: 061
  3. VIVISCAL [Concomitant]
     Indication: PRODUCT USED FOR UNKNOWN INDICATION
     Dosage: 4 MONTHS
     Route: 065

REACTIONS (4)
  - Product formulation issue [Unknown]
  - Accidental exposure to product [Recovering/Resolving]
  - Incorrect dose administered [Recovering/Resolving]
  - Eye irritation [Recovering/Resolving]

NARRATIVE: CASE EVENT DATE: 20170803
